FAERS Safety Report 19004303 (Version 3)
Quarter: 2021Q3

REPORT INFORMATION
  Report Type: Report from Study
  Country: CA (occurrence: CA)
  Receive Date: 20210312
  Receipt Date: 20210826
  Transmission Date: 20211014
  Serious: Yes (Other)
  Sender: FDA-Public Use
  Company Number: NVSC2020CA299431

PATIENT
  Age: 65 Year
  Sex: Female

DRUGS (1)
  1. MAYZENT [Suspect]
     Active Substance: SIPONIMOD
     Indication: SECONDARY PROGRESSIVE MULTIPLE SCLEROSIS
     Dosage: UNK
     Route: 048
     Dates: start: 20201102

REACTIONS (7)
  - Blood pressure systolic increased [Unknown]
  - Bradykinesia [Unknown]
  - Visual impairment [Unknown]
  - Syncope [Unknown]
  - Labile blood pressure [Unknown]
  - Sensory loss [Unknown]
  - Eye haemorrhage [Unknown]

NARRATIVE: CASE EVENT DATE: 20201105
